FAERS Safety Report 13885345 (Version 4)
Quarter: 2018Q2

REPORT INFORMATION
  Report Type: Spontaneous
  Country: FR (occurrence: FR)
  Receive Date: 20170821
  Receipt Date: 20180523
  Transmission Date: 20180711
  Serious: Yes (Hospitalization, Disabling, Other)
  Sender: FDA-Public Use
  Company Number: FR-TAKEDA-2017MPI007089

PATIENT
  Age: 51 Year
  Sex: Female
  Weight: 76 kg

DRUGS (4)
  1. DEXAMETHASONE. [Concomitant]
     Active Substance: DEXAMETHASONE
     Indication: PLASMA CELL MYELOMA
     Dosage: UNK
     Route: 048
     Dates: start: 20161010, end: 20170117
  2. DEXAMETHASONE. [Concomitant]
     Active Substance: DEXAMETHASONE
     Dosage: 400 G, UNK
     Route: 048
     Dates: start: 2017
  3. VELCADE [Suspect]
     Active Substance: BORTEZOMIB
     Indication: PLASMA CELL MYELOMA
     Dosage: 1.3 MG/M2, UNK
     Route: 058
     Dates: start: 20161010, end: 20170112
  4. THALIDOMIDE [Suspect]
     Active Substance: THALIDOMIDE
     Indication: PLASMA CELL MYELOMA
     Dosage: 100 MG, QD
     Route: 048
     Dates: start: 20161010, end: 20170129

REACTIONS (2)
  - Peripheral sensory neuropathy [Recovered/Resolved]
  - Peripheral motor neuropathy [Recovered/Resolved]

NARRATIVE: CASE EVENT DATE: 20170221
